FAERS Safety Report 5043021-0 (Version None)
Quarter: 2006Q2

REPORT INFORMATION
  Report Type: 
  Country: None (occurrence: None)
  Receive Date: 20060628
  Receipt Date: 20060627
  Transmission Date: 20061013
  Serious: Yes (Other)
  Sender: FDA-Public Use
  Company Number: 2006S1000132

PATIENT
  Age: 12 Day
  Sex: Male

DRUGS (18)
  1. INOMAX [Suspect]
     Indication: LUNG DISORDER
     Dosage: 5 PPM; INH_GAS; INH; CONT INH
     Route: 055
     Dates: start: 20060604
  2. INOMAX [Suspect]
     Indication: PROPHYLAXIS
     Dosage: 5 PPM; INH_GAS; INH; CONT INH
     Route: 055
     Dates: start: 20060604
  3. AMPICILLIN [Concomitant]
  4. AMIKACIN [Concomitant]
  5. AMIKACIN [Concomitant]
  6. DOPAMINE HCL [Concomitant]
  7. FENTANYL [Concomitant]
  8. CALCIUM GLUCONATE [Concomitant]
  9. FENTANYL [Concomitant]
  10. SODIUM BICARBONATE IN PLASTIC CONTAINER [Concomitant]
  11. IBUPROFEN [Concomitant]
  12. IBUPROFEN [Concomitant]
  13. SANDOGLOBULIN [Concomitant]
  14. VANCOMYCIN [Concomitant]
  15. CEFOTAXIME SODIUM [Concomitant]
  16. PERFUSALGAN [Concomitant]
  17. ATROPINE [Concomitant]
  18. FENTANYL [Concomitant]

REACTIONS (1)
  - PATENT DUCTUS ARTERIOSUS [None]
